FAERS Safety Report 14784789 (Version 1)
Quarter: 2018Q2

REPORT INFORMATION
  Report Type: Spontaneous
  Country: JP (occurrence: JP)
  Receive Date: 20180420
  Receipt Date: 20180420
  Transmission Date: 20180711
  Serious: Yes (Life-Threatening, Other)
  Sender: FDA-Public Use
  Company Number: JP-HQ SPECIALTY-JP-2018INT000054

PATIENT
  Age: 68 Year
  Sex: Female

DRUGS (9)
  1. DOXORUBICIN [Suspect]
     Active Substance: DOXORUBICIN
     Indication: ADRENAL GLAND CANCER
     Dosage: 20 MG/M2, DAYS 1 AND 8 EVERY 4 WEEKS)
     Route: 065
  2. CISPLATIN. [Suspect]
     Active Substance: CISPLATIN
     Indication: ADRENAL GLAND CANCER
     Dosage: 40 MG/M2, (ON DAYS 1 AND 9)
     Route: 065
  3. ETOPOSIDE. [Suspect]
     Active Substance: ETOPOSIDE
     Indication: METASTASES TO LIVER
  4. MITOTANE [Suspect]
     Active Substance: MITOTANE
     Dosage: 7.5 G, QD
     Route: 048
  5. CISPLATIN. [Suspect]
     Active Substance: CISPLATIN
     Indication: METASTASES TO LIVER
  6. MITOTANE [Suspect]
     Active Substance: MITOTANE
     Indication: METASTASES TO LIVER
     Dosage: 7.5 G, QD (MONOTHERAPY)
     Route: 065
  7. MITOTANE [Suspect]
     Active Substance: MITOTANE
     Indication: ADRENAL GLAND CANCER
     Dosage: 1.5 G, QD (MONOTHERAPY)
     Route: 065
  8. DOXORUBICIN [Suspect]
     Active Substance: DOXORUBICIN
     Indication: METASTASES TO LIVER
  9. ETOPOSIDE. [Suspect]
     Active Substance: ETOPOSIDE
     Indication: ADRENAL GLAND CANCER
     Dosage: 100 MG/M2, (ON DAYS 57 EVERY FOUR WEEKS)
     Route: 065

REACTIONS (4)
  - Adrenal insufficiency [Unknown]
  - Neutropenia [Unknown]
  - Hyponatraemia [Unknown]
  - Febrile neutropenia [Unknown]
